FAERS Safety Report 6276471-5 (Version None)
Quarter: 2009Q3

REPORT INFORMATION
  Report Type: 
  Country: None (occurrence: None)
  Receive Date: 20090720
  Receipt Date: 20080707
  Transmission Date: 20100115
  Serious: Yes (Hospitalization, Other)
  Sender: FDA-Public Use
  Company Number: USA-2008-0033841

PATIENT
  Age: 15 Year
  Sex: Female

DRUGS (1)
  1. MORPHINE SULFATE [Suspect]
     Indication: DRUG ABUSE
     Dosage: 200 MG, DAILY, ORAL
     Route: 048
     Dates: start: 20080226, end: 20080226

REACTIONS (3)
  - DRUG ABUSE [None]
  - LOSS OF CONSCIOUSNESS [None]
  - OVERDOSE [None]
